FAERS Safety Report 4504234-7 (Version None)
Quarter: 2004Q4

REPORT INFORMATION
  Report Type: 
  Country: None (occurrence: None)
  Receive Date: 20041116
  Receipt Date: 20041111
  Transmission Date: 20050328
  Serious: Yes (Death)
  Sender: FDA-Public Use
  Company Number: 04-11-1575

PATIENT
  Age: 17 Year
  Sex: Male

DRUGS (1)
  1. DOXYCYCLINE HYLATE [Suspect]
     Indication: ACNE
     Dosage: 100MG BID ORAL
     Route: 048
     Dates: start: 20040101, end: 20040820

REACTIONS (4)
  - COMPLETED SUICIDE [None]
  - DEPRESSION [None]
  - INJURY ASPHYXIATION [None]
  - INSOMNIA [None]
